FAERS Safety Report 9340416 (Version 2)
Quarter: 2014Q2

REPORT INFORMATION
  Report Type: Spontaneous
  Country: US (occurrence: US)
  Receive Date: 20130610
  Receipt Date: 20140613
  Transmission Date: 20141212
  Serious: Yes (Hospitalization)
  Sender: FDA-Public Use
  Company Number: US-BAYER-2013-070529

PATIENT
  Sex: Female

DRUGS (3)
  1. YAZ [Suspect]
     Indication: ACNE
  2. YASMIN [Suspect]
     Indication: ACNE
     Route: 048
  3. OCELLA [Suspect]
     Indication: ACNE
     Route: 048

REACTIONS (3)
  - Transient ischaemic attack [None]
  - Injury [None]
  - Pain [None]
